FAERS Safety Report 16086725 (Version 3)
Quarter: 2019Q2

REPORT INFORMATION
  Report Type: Report from Study
  Country: CO (occurrence: CO)
  Receive Date: 20190318
  Receipt Date: 20190620
  Transmission Date: 20190711
  Serious: Yes (Other)
  Sender: FDA-Public Use
  Company Number: PHHY2018CO069245

PATIENT
  Age: 63 Year
  Sex: Female
  Weight: 69 kg

DRUGS (4)
  1. TAFINLAR [Suspect]
     Active Substance: DABRAFENIB MESYLATE
     Dosage: 300 MG, QD
     Route: 048
  2. MEKINIST [Suspect]
     Active Substance: TRAMETINIB DIMETHYL SULFOXIDE
     Indication: METASTATIC MALIGNANT MELANOMA
     Dosage: 2 MG, QD
     Route: 048
     Dates: start: 20180801, end: 201902
  3. MEKINIST [Suspect]
     Active Substance: TRAMETINIB DIMETHYL SULFOXIDE
     Dosage: 2 MG, QD
     Route: 048
  4. TAFINLAR [Suspect]
     Active Substance: DABRAFENIB MESYLATE
     Indication: METASTATIC MALIGNANT MELANOMA
     Dosage: 300 MG, QD
     Route: 048
     Dates: start: 20180801, end: 201902

REACTIONS (19)
  - Dry mouth [Unknown]
  - Nausea [Unknown]
  - Retinal injury [Unknown]
  - Macular rupture [Unknown]
  - Somnolence [Unknown]
  - Depressed mood [Unknown]
  - Feeling hot [Unknown]
  - Dry throat [Unknown]
  - Tooth fracture [Unknown]
  - Insomnia [Unknown]
  - Temperature intolerance [Unknown]
  - Vulvovaginal burning sensation [Unknown]
  - Inflammation [Recovering/Resolving]
  - Dry skin [Not Recovered/Not Resolved]
  - Bradycardia [Unknown]
  - Visual impairment [Unknown]
  - Swelling [Recovering/Resolving]
  - Inappropriate schedule of product administration [Unknown]
  - Headache [Unknown]

NARRATIVE: CASE EVENT DATE: 20180801
